FAERS Safety Report 7369792-6 (Version None)
Quarter: 2011Q1

REPORT INFORMATION
  Report Type: 
  Country: None (occurrence: None)
  Receive Date: 20110318
  Receipt Date: 20110318
  Transmission Date: 20110831
  Serious: No
  Sender: FDA-Public Use
  Company Number: None

PATIENT
  Age: 65 Year
  Sex: Male
  Weight: 78.1 kg

DRUGS (1)
  1. INSULIN [Suspect]
     Dosage: 20 UNITS HS SQ
     Route: 048
     Dates: start: 20091027

REACTIONS (1)
  - HYPOGLYCAEMIA [None]
